FAERS Safety Report 4834404-X (Version None)
Quarter: 2005Q4

REPORT INFORMATION
  Report Type: 
  Country: None (occurrence: None)
  Receive Date: 20051122
  Receipt Date: 20051107
  Transmission Date: 20060501
  Serious: Yes (Hospitalization)
  Sender: FDA-Public Use
  Company Number: US-AMGEN-US156547

PATIENT
  Sex: Female

DRUGS (6)
  1. ENBREL [Suspect]
     Indication: PSORIASIS
     Route: 058
     Dates: end: 20050901
  2. CEFEPIME [Concomitant]
     Dates: start: 20051021, end: 20051026
  3. LISINOPRIL [Concomitant]
     Dates: start: 20050505, end: 20051107
  4. METFORMIN [Concomitant]
     Dates: start: 20051102, end: 20051107
  5. PROTONIX [Concomitant]
     Dates: start: 20051020, end: 20051107
  6. AVANDIA [Concomitant]
     Dates: start: 20051102, end: 20051107

REACTIONS (5)
  - CONDITION AGGRAVATED [None]
  - HYSTERECTOMY [None]
  - PSORIASIS [None]
  - PYREXIA [None]
  - WHITE BLOOD CELL COUNT DECREASED [None]
